FAERS Safety Report 13025350 (Version 1)
Quarter: 2016Q4

REPORT INFORMATION
  Report Type: Report from Study
  Country: None (occurrence: US)
  Receive Date: 20161214
  Receipt Date: 20161214
  Transmission Date: 20170207
  Serious: Yes (Other)
  Sender: FDA-Public Use
  Company Number: US-ABBVIE-16K-163-1803812-00

PATIENT
  Age: 58 Year
  Sex: Male

DRUGS (1)
  1. HUMIRA [Suspect]
     Active Substance: ADALIMUMAB
     Indication: RHEUMATOID ARTHRITIS
     Route: 058
     Dates: end: 2015

REACTIONS (4)
  - Coronary artery occlusion [Not Recovered/Not Resolved]
  - Arrhythmia [Not Recovered/Not Resolved]
  - Eye operation [Not Recovered/Not Resolved]
  - Eye operation [Not Recovered/Not Resolved]

NARRATIVE: CASE EVENT DATE: 201512
